FAERS Safety Report 18857561 (Version 1)
Quarter: 2021Q1

REPORT INFORMATION
  Report Type: Spontaneous
  Country: US (occurrence: US)
  Receive Date: 20210208
  Receipt Date: 20210208
  Transmission Date: 20210420
  Serious: Yes (Death, Hospitalization, Other)
  Sender: FDA-Public Use
  Company Number: US-TAKEDA-2021TUS007753

PATIENT
  Age: 34 Year
  Sex: Male
  Weight: 49 kg

DRUGS (2)
  1. BLINATUMOMAB [Suspect]
     Active Substance: BLINATUMOMAB
     Indication: ACUTE LYMPHOCYTIC LEUKAEMIA
     Dosage: UNK
     Route: 065
     Dates: start: 202006
  2. ICLUSIG [Suspect]
     Active Substance: PONATINIB
     Indication: ACUTE LYMPHOCYTIC LEUKAEMIA
     Dosage: 45 MILLIGRAM
     Route: 065
     Dates: start: 202006

REACTIONS (9)
  - Pyrexia [Unknown]
  - Nausea [Unknown]
  - Bacteraemia [Unknown]
  - Headache [Unknown]
  - Death [Fatal]
  - Exposure to SARS-CoV-2 [Unknown]
  - Graft versus host disease in gastrointestinal tract [Unknown]
  - Infection [Unknown]
  - Pancreatitis [Unknown]

NARRATIVE: CASE EVENT DATE: 20201222
